FAERS Safety Report 13503588 (Version 1)
Quarter: 2017Q2

REPORT INFORMATION
  Report Type: Spontaneous
  Country: US (occurrence: US)
  Receive Date: 20170502
  Receipt Date: 20170502
  Transmission Date: 20170830
  Serious: Yes (Other)
  Sender: FDA-Public Use
  Company Number: US-LPDUSPRD-20170513

PATIENT
  Age: 22 Month
  Sex: Female

DRUGS (1)
  1. LIDOCAINE HCL INJECTION, USP (0517-9402-01) [Suspect]
     Active Substance: LIDOCAINE HYDROCHLORIDE
     Dosage: DOSE UNKNOWN
     Route: 050

REACTIONS (1)
  - Embolia cutis medicamentosa [Unknown]
